FAERS Safety Report 14128476 (Version 1)
Quarter: 2017Q4

REPORT INFORMATION
  Report Type: Spontaneous
  Country: US (occurrence: US)
  Receive Date: 20171026
  Receipt Date: 20171026
  Transmission Date: 20180321
  Serious: Yes (Life-Threatening, Hospitalization, Other)
  Sender: FDA-Public Use
  Company Number: US-LUPIN PHARMACEUTICALS INC.-2017-06191

PATIENT
  Age: 13 Year
  Sex: Female

DRUGS (1)
  1. BUPROPION. [Suspect]
     Active Substance: BUPROPION
     Indication: PRODUCT USED FOR UNKNOWN INDICATION
     Dosage: UNK
     Route: 048

REACTIONS (6)
  - Electrocardiogram QT prolonged [Unknown]
  - Overdose [Unknown]
  - Tachycardia [Recovered/Resolved]
  - Seizure [Recovered/Resolved]
  - Intentional self-injury [Unknown]
  - Toxicity to various agents [Unknown]
